FAERS Safety Report 21286001 (Version 1)
Quarter: 2022Q3

REPORT INFORMATION
  Report Type: Spontaneous
  Country: US (occurrence: None)
  Receive Date: 20220901
  Receipt Date: 20220901
  Transmission Date: 20221026
  Serious: Yes (Other)
  Sender: FDA-Public Use
  Company Number: None

PATIENT
  Age: 26 Year
  Sex: Female
  Weight: 60.21 kg

DRUGS (1)
  1. HALOPERIDOL [Suspect]
     Active Substance: HALOPERIDOL
     Dosage: FREQUENCY : TWICE A DAY;?
     Route: 048
     Dates: start: 20220428, end: 20220516

REACTIONS (3)
  - Gaze palsy [None]
  - Dystonia [None]
  - Eye disorder [None]

NARRATIVE: CASE EVENT DATE: 20220516
